FAERS Safety Report 8839407 (Version 1)
Quarter: 2012Q4

REPORT INFORMATION
  Report Type: Spontaneous
  Country: US (occurrence: None)
  Receive Date: 20121012
  Receipt Date: 20121012
  Transmission Date: 20130627
  Serious: Yes (Hospitalization)
  Sender: FDA-Public Use
  Company Number: None

PATIENT
  Sex: Female
  Weight: 83.92 kg

DRUGS (2)
  1. DOXYCYCLINE HYCLATE [Suspect]
     Route: 048
     Dates: start: 20120917
  2. INFLUENZA VACCINE [Suspect]
     Dosage: 0.5 ml injection
     Dates: start: 20120917

REACTIONS (8)
  - Headache [None]
  - Vision blurred [None]
  - Gait disturbance [None]
  - Dizziness [None]
  - Muscular weakness [None]
  - Confusional state [None]
  - Aphasia [None]
  - Intracranial pressure increased [None]
